FAERS Safety Report 14873228 (Version 5)
Quarter: 2018Q3

REPORT INFORMATION
  Report Type: Spontaneous
  Country: US (occurrence: US)
  Receive Date: 20180510
  Receipt Date: 20180724
  Transmission Date: 20181010
  Serious: No
  Sender: FDA-Public Use
  Company Number: US-PFIZER INC-2018189198

PATIENT
  Age: 60 Year
  Sex: Female

DRUGS (2)
  1. XELJANZ XR [Suspect]
     Active Substance: TOFACITINIB CITRATE
     Dosage: 0.5 DF, DAILY (TAKING 1/2 TABLET)
     Dates: start: 2018
  2. XELJANZ XR [Suspect]
     Active Substance: TOFACITINIB CITRATE
     Dosage: 11 MG, DAILY
     Dates: start: 201805, end: 2018

REACTIONS (6)
  - Intentional product misuse [Unknown]
  - Peripheral swelling [Unknown]
  - Blood pressure abnormal [Recovering/Resolving]
  - Hyperhidrosis [Unknown]
  - Product use issue [Unknown]
  - Tremor [Unknown]

NARRATIVE: CASE EVENT DATE: 2018
